FAERS Safety Report 8619397-1 (Version None)
Quarter: 2012Q3

REPORT INFORMATION
  Report Type: 
  Country: None (occurrence: None)
  Receive Date: 20120824
  Receipt Date: 20120815
  Transmission Date: 20120928
  Serious: Yes (Other)
  Sender: FDA-Public Use
  Company Number: US-NAPPMUNDI-USA-2012-0091631

PATIENT
  Sex: Female

DRUGS (5)
  1. OXYCONTIN [Suspect]
     Dosage: 320 MG, HS
     Route: 048
  2. ABILIFY [Suspect]
     Indication: MENTAL DISORDER
  3. OXYCONTIN [Suspect]
     Dosage: 160 MG, PM
     Route: 048
  4. OXYCONTIN [Suspect]
     Indication: PAIN
     Dosage: 320 MG, AM
     Route: 048
  5. ABILIFY [Suspect]
     Indication: DEPRESSION
     Dosage: UNK
     Dates: start: 20120101

REACTIONS (4)
  - INSOMNIA [None]
  - FATIGUE [None]
  - DEPRESSION [None]
  - MENTAL DISORDER [None]
